FAERS Safety Report 5024556-3 (Version None)
Quarter: 2006Q2

REPORT INFORMATION
  Report Type: 
  Country: None (occurrence: None)
  Receive Date: 20060608
  Receipt Date: 20060608
  Transmission Date: 20061013
  Serious: Yes (Hospitalization)
  Sender: FDA-Public Use
  Company Number: None

PATIENT
  Age: 73 Year
  Sex: Male
  Weight: 92.9874 kg

DRUGS (10)
  1. METRONIDAZOLE [Suspect]
     Indication: INFECTION
     Dosage: 500 MG TID ORAL
     Route: 048
  2. LISINOPRIL [Concomitant]
  3. NAPROXEN [Concomitant]
  4. APAP TAB [Concomitant]
  5. ALBUTEROL [Concomitant]
  6. FLUNISOLIDE [Concomitant]
  7. HEPARIN [Concomitant]
  8. HYDROCHLOROTHIAZIDE [Concomitant]
  9. IPATROPIUM [Concomitant]
  10. ZOSYN [Concomitant]

REACTIONS (1)
  - PANCREATITIS ACUTE [None]
